FAERS Safety Report 6170868-X (Version None)
Quarter: 2009Q2

REPORT INFORMATION
  Report Type: 
  Country: None (occurrence: None)
  Receive Date: 20090427
  Receipt Date: 20090415
  Transmission Date: 20091009
  Serious: Yes (Other)
  Sender: FDA-Public Use
  Company Number: AE-2009-018

PATIENT
  Age: 42 Year
  Sex: Male

DRUGS (5)
  1. HYDROXYCHLOROQUINE SULFATE [Suspect]
     Indication: WHIPPLE'S DISEASE
  2. CEFTRIAXONE [Suspect]
     Indication: WHIPPLE'S DISEASE
  3. COTRIMOXAZOLE (SULPHAMETHOXAZOLE, TRIMETHOPRIM) [Suspect]
  4. DOXYCYCLINE [Suspect]
  5. STREPTOMYCIN [Suspect]

REACTIONS (5)
  - DISORDER OF ORBIT [None]
  - HERPES SIMPLEX [None]
  - IMMUNE RECONSTITUTION SYNDROME [None]
  - MASS [None]
  - NODULE [None]
